FAERS Safety Report 15478883 (Version 1)
Quarter: 2018Q4

REPORT INFORMATION
  Report Type: Spontaneous
  Country: PT (occurrence: PT)
  Receive Date: 20181009
  Receipt Date: 20181009
  Transmission Date: 20190205
  Serious: Yes (Hospitalization, Disabling, Other)
  Sender: FDA-Public Use
  Company Number: PT-SA-2016SA152376

PATIENT
  Age: 81 Year
  Sex: Female

DRUGS (1)
  1. MYOZYME [Suspect]
     Active Substance: ALGLUCOSIDASE ALFA
     Indication: GLYCOGEN STORAGE DISEASE TYPE II
     Dosage: 1000 MG,QOW
     Route: 041
     Dates: start: 20110601, end: 20160817

REACTIONS (9)
  - Hypotension [Recovered/Resolved]
  - Angioedema [Recovered/Resolved]
  - Arthropathy [Unknown]
  - Gait disturbance [Unknown]
  - Anaphylactic reaction [Recovered/Resolved]
  - Rash [Recovered/Resolved]
  - Muscle disorder [Unknown]
  - Immunoglobulins increased [Unknown]
  - General physical health deterioration [Unknown]

NARRATIVE: CASE EVENT DATE: 20160817
